FAERS Safety Report 7753543-7 (Version None)
Quarter: 2011Q3

REPORT INFORMATION
  Report Type: 
  Country: None (occurrence: None)
  Receive Date: 20110915
  Receipt Date: 20110909
  Transmission Date: 20111222
  Serious: Yes (Life-Threatening, Hospitalization)
  Sender: FDA-Public Use
  Company Number: DK-TEVA-300038ISR

PATIENT
  Sex: Female
  Weight: 65.5 kg

DRUGS (9)
  1. ETOPOSIDE [Suspect]
  2. ONDANSETRON [Interacting]
  3. ALLOPURINOL [Interacting]
     Route: 048
  4. KALEORID 750 MG DEPOTTABLETTER [Interacting]
     Dosage: 750 MILLIGRAM(S)
     Route: 048
  5. NOXAFIL [Interacting]
     Indication: HEPATOSPLENIC CANDIDIASIS
     Dosage: 40 MG/ML
     Route: 048
     Dates: start: 20071019, end: 20080125
  6. CYTARABINE [Interacting]
  7. ACICLODAN 200 MG TABLETTER [Interacting]
  8. PANTOPRAZOLE SODIUM [Interacting]
  9. VOGALENE [Interacting]

REACTIONS (2)
  - SINOATRIAL BLOCK [None]
  - DRUG INTERACTION [None]
